FAERS Safety Report 4667965-4 (Version None)
Quarter: 2005Q2

REPORT INFORMATION
  Report Type: 
  Country: None (occurrence: None)
  Receive Date: 20050520
  Receipt Date: 20050509
  Transmission Date: 20051028
  Serious: Yes (Disabling)
  Sender: FDA-Public Use
  Company Number: 2005GB00900

PATIENT
  Age: 14 Year
  Sex: Female
  Weight: 50 kg

DRUGS (5)
  1. PROPOFOL [Suspect]
     Indication: ANAESTHESIA
     Route: 042
     Dates: start: 20050411, end: 20050411
  2. FENTANYL [Concomitant]
     Indication: ANAESTHESIA
     Route: 042
     Dates: start: 20050411
  3. MIVACURIUM CHLORIDE [Concomitant]
     Indication: ANAESTHESIA
     Route: 042
     Dates: start: 20050411
  4. PARACETAMOL [Concomitant]
     Route: 065
     Dates: start: 20050411
  5. ULTANE [Concomitant]
     Route: 055
     Dates: start: 20050411

REACTIONS (2)
  - DYSKINESIA [None]
  - GRAND MAL CONVULSION [None]
